FAERS Safety Report 13447895 (Version 1)
Quarter: 2017Q2

REPORT INFORMATION
  Report Type: Spontaneous
  Country: CH (occurrence: FR)
  Receive Date: 20170417
  Receipt Date: 20170417
  Transmission Date: 20170830
  Serious: Yes (Hospitalization)
  Sender: FDA-Public Use
  Company Number: CH-LPDUSPRD-20170428

PATIENT
  Age: 73 Year
  Sex: Male

DRUGS (13)
  1. RILMENIDINE [Concomitant]
     Active Substance: RILMENIDINE
  2. PANTOPRAZOLE [Concomitant]
     Active Substance: PANTOPRAZOLE
  3. RENVELA [Concomitant]
     Active Substance: SEVELAMER CARBONATE
  4. VENOFER [Suspect]
     Active Substance: IRON SUCROSE
     Dosage: 300 MG
     Route: 065
     Dates: start: 20160322
  5. DIAMICRON [Concomitant]
     Active Substance: GLICLAZIDE
  6. COUMADINE [Concomitant]
     Active Substance: WARFARIN SODIUM
  7. LASILIX [Concomitant]
     Active Substance: FUROSEMIDE
  8. VELPHORO [Suspect]
     Active Substance: FERRIC OXYHYDROXIDE
     Dosage: 1000 MG
     Route: 048
     Dates: start: 20160707
  9. ZYMAD [Concomitant]
     Active Substance: CHOLECALCIFEROL
  10. JANUVIA [Concomitant]
     Active Substance: SITAGLIPTIN PHOSPHATE
  11. CADUET [Concomitant]
     Active Substance: AMLODIPINE BESYLATE\ATORVASTATIN CALCIUM
  12. RAMIPRIL. [Concomitant]
     Active Substance: RAMIPRIL
  13. MIRCERA [Suspect]
     Active Substance: METHOXY POLYETHYLENE GLYCOL-EPOETIN BETA
     Dosage: 75 MCG
     Dates: start: 20151217, end: 20160606

REACTIONS (1)
  - Gastroenteritis [Recovered/Resolved]

NARRATIVE: CASE EVENT DATE: 20160828
